FAERS Safety Report 7171361-8 (Version None)
Quarter: 2010Q4

REPORT INFORMATION
  Report Type: 
  Country: None (occurrence: None)
  Receive Date: 20101123
  Receipt Date: 20100928
  Transmission Date: 20110411
  Serious: No
  Sender: FDA-Public Use
  Company Number: 019600

PATIENT
  Sex: Female

DRUGS (1)
  1. CIMZIA [Suspect]
     Indication: CROHN'S DISEASE
     Dosage: (400 MG 1X/MONTH, LOT NUMBER: 55285; EXPIRY DATE: 17/AUG/2011 SUBCUTANEOUS)
     Route: 058
     Dates: start: 20100301

REACTIONS (2)
  - PYREXIA [None]
  - UPPER RESPIRATORY TRACT INFECTION [None]
